FAERS Safety Report 9877465 (Version 2)
Quarter: 2014Q1

REPORT INFORMATION
  Report Type: Spontaneous
  Country: US (occurrence: US)
  Receive Date: 20140206
  Receipt Date: 20140304
  Transmission Date: 20141002
  Serious: No
  Sender: FDA-Public Use
  Company Number: US-B.I. PHARMACEUTICALS,INC./RIDGEFIELD-2014-BI-04250BP

PATIENT
  Age: 68 Year
  Sex: Female
  Weight: 55 kg

DRUGS (2)
  1. SPIRIVA [Suspect]
     Indication: PNEUMONIA
     Dosage: 18 MCG
     Route: 055
     Dates: start: 20140128
  2. SPIRIVA [Suspect]
     Indication: PNEUMOTHORAX

REACTIONS (7)
  - Vomiting [Recovered/Resolved]
  - Headache [Not Recovered/Not Resolved]
  - Glossodynia [Recovered/Resolved]
  - Off label use [Unknown]
  - Product quality issue [Recovered/Resolved]
  - Product quality issue [Recovered/Resolved]
  - Product quality issue [Recovered/Resolved]
